FAERS Safety Report 6933882-X (Version None)
Quarter: 2010Q3

REPORT INFORMATION
  Report Type: 
  Country: None (occurrence: None)
  Receive Date: 20100820
  Receipt Date: 20100809
  Transmission Date: 20110219
  Serious: Yes (Other)
  Sender: FDA-Public Use
  Company Number: US-PFIZER INC-2010100141

PATIENT
  Sex: Male
  Weight: 113.38 kg

DRUGS (3)
  1. NEURONTIN [Suspect]
     Indication: NEURALGIA
     Dosage: UNK
     Route: 048
  2. LYRICA [Suspect]
     Indication: NEURALGIA
     Dosage: 100 MG, 3X/DAY
     Route: 048
     Dates: start: 20100101
  3. OXYCODONE [Concomitant]
     Indication: PAIN
     Dosage: 5 MG, 4X/DAY
     Route: 048

REACTIONS (14)
  - ABNORMAL FAECES [None]
  - BALANCE DISORDER [None]
  - BURNING SENSATION [None]
  - COGNITIVE DISORDER [None]
  - CONFUSIONAL STATE [None]
  - DIZZINESS [None]
  - DRUG INEFFECTIVE [None]
  - ERYTHEMA [None]
  - NEURALGIA [None]
  - NEUROPATHY PERIPHERAL [None]
  - NOCTURNAL DYSPNOEA [None]
  - SLEEP DISORDER [None]
  - VISION BLURRED [None]
  - VISUAL IMPAIRMENT [None]
